FAERS Safety Report 6034082-0 (Version None)
Quarter: 2009Q1

REPORT INFORMATION
  Report Type: 
  Country: None (occurrence: None)
  Receive Date: 20090112
  Receipt Date: 20090102
  Transmission Date: 20090719
  Serious: Yes (Hospitalization)
  Sender: FDA-Public Use
  Company Number: US-ABBOTT-09P-163-0495630-00

PATIENT
  Sex: Female

DRUGS (4)
  1. SIMCOR [Suspect]
     Indication: BLOOD CHOLESTEROL INCREASED
     Dosage: 500MG/20MG, AT BEDTIME
     Route: 048
     Dates: start: 20081101
  2. POTASSIUM CHLORIDE [Concomitant]
     Indication: BLOOD POTASSIUM DECREASED
     Route: 048
  3. BIODENTICAL [Concomitant]
     Indication: DRUG USE FOR UNKNOWN INDICATION
  4. PROGESTERONE [Concomitant]
     Indication: DRUG USE FOR UNKNOWN INDICATION

REACTIONS (4)
  - BLOOD POTASSIUM DECREASED [None]
  - FLUSHING [None]
  - LOSS OF CONSCIOUSNESS [None]
  - VOMITING [None]
